FAERS Safety Report 5731344-9 (Version None)
Quarter: 2008Q2

REPORT INFORMATION
  Report Type: 
  Country: None (occurrence: None)
  Receive Date: 20080506
  Receipt Date: 20080428
  Transmission Date: 20081010
  Serious: Yes (Life-Threatening, Hospitalization, Disabling)
  Sender: FDA-Public Use
  Company Number: 163-21880-08030998

PATIENT
  Age: 73 Year
  Sex: Male

DRUGS (22)
  1. REVLIMID [Suspect]
     Indication: MULTIPLE MYELOMA
     Dosage: 25 MG, QDX21 DAYS Q28D, ORAL
     Route: 048
     Dates: start: 20071115, end: 20080201
  2. CALCIUM (CALCIUM) [Concomitant]
  3. MULTIVITAMIN [Concomitant]
  4. ASPIRIN [Concomitant]
  5. GLIMEPIRIDE [Concomitant]
  6. PROPOXYPHENE (DEXTROPROPOXYPHENE) [Concomitant]
  7. ZOLOFT [Concomitant]
  8. GLUCOSAMINE (GLUCOSAMINE) [Concomitant]
  9. MEGACE [Concomitant]
  10. PREDNISONE TAB [Concomitant]
  11. VANCOMYCIN [Concomitant]
  12. AVANDIA [Concomitant]
  13. PLAVIX [Concomitant]
  14. NITROGLYCERIN [Concomitant]
  15. VYTORIN [Concomitant]
  16. CENTRUM SILVER (CENTRUM SILVER) [Concomitant]
  17. CALCIUM PLUS D (CALCIUM WITH VITAMIN D) [Concomitant]
  18. POTASSIUM GLUCONATE (POTASSIUM GLUCONATE) [Concomitant]
  19. NIASPAN [Concomitant]
  20. FOLIC ACID [Concomitant]
  21. COREG [Concomitant]
  22. BACTRIM DS [Concomitant]

REACTIONS (24)
  - ACUTE SINUSITIS [None]
  - AGITATION [None]
  - ALANINE AMINOTRANSFERASE INCREASED [None]
  - ANAEMIA [None]
  - ASPARTATE AMINOTRANSFERASE INCREASED [None]
  - ATELECTASIS [None]
  - ATRIAL FLUTTER [None]
  - BLOOD ALBUMIN DECREASED [None]
  - BLOOD ALKALINE PHOSPHATASE DECREASED [None]
  - BLOOD PH DECREASED [None]
  - CARDIAC FAILURE CONGESTIVE [None]
  - CONFUSIONAL STATE [None]
  - HAEMOPHILUS INFECTION [None]
  - LEFT VENTRICULAR HYPERTROPHY [None]
  - MITRAL VALVE INCOMPETENCE [None]
  - PANCYTOPENIA [None]
  - PLEURAL EFFUSION [None]
  - PNEUMONIA [None]
  - PULMONARY EMBOLISM [None]
  - PULMONARY HYPERTENSION [None]
  - RENAL FAILURE ACUTE [None]
  - RENAL TUBULAR NECROSIS [None]
  - SEPSIS [None]
  - UPPER RESPIRATORY TRACT INFECTION [None]
